FAERS Safety Report 7265883-9 (Version None)
Quarter: 2011Q1

REPORT INFORMATION
  Report Type: 
  Country: None (occurrence: None)
  Receive Date: 20110131
  Receipt Date: 20110124
  Transmission Date: 20110831
  Serious: Yes (Other)
  Sender: FDA-Public Use
  Company Number: B0690178A

PATIENT
  Sex: Female
  Weight: 44 kg

DRUGS (3)
  1. TELMISARTAN/HYDROCHLOROTHIAZIDE [Concomitant]
     Dosage: 1IUAX PER DAY
     Route: 048
  2. ARIXTRA [Suspect]
     Indication: THROMBOSIS PROPHYLAXIS
     Dosage: 2.5MG PER DAY
     Route: 058
     Dates: start: 20101209, end: 20101212
  3. ADALAT CC [Concomitant]
     Indication: HYPERTENSION
     Dosage: 20MG PER DAY
     Route: 048

REACTIONS (3)
  - POST PROCEDURAL SWELLING [None]
  - POST PROCEDURAL HAEMORRHAGE [None]
  - ANAEMIA [None]
